FAERS Safety Report 16490392 (Version 1)
Quarter: 2019Q2

REPORT INFORMATION
  Report Type: Spontaneous
  Country: SD (occurrence: SD)
  Receive Date: 20190628
  Receipt Date: 20190628
  Transmission Date: 20190711
  Serious: Yes (Other)
  Sender: FDA-Public Use
  Company Number: SD-FRESENIUS KABI-FK201906989

PATIENT
  Age: 7 Month
  Sex: Female

DRUGS (3)
  1. FUROSEMIDE (MANUFACTURER UNKNOWN) [Suspect]
     Active Substance: FUROSEMIDE
     Indication: HYPERPARATHYROIDISM
     Dosage: UNKNOWN
     Route: 065
  2. NO DRUG NAME [Suspect]
     Active Substance: UNSPECIFIED INGREDIENT
     Indication: HYPERPARATHYROIDISM
     Dosage: UNKNOWN
     Route: 065
  3. CALCITONIN [Suspect]
     Active Substance: CALCITONIN
     Indication: HYPERPARATHYROIDISM
     Dosage: UNKNOWN
     Route: 065

REACTIONS (2)
  - Product use in unapproved indication [Recovered/Resolved]
  - Treatment failure [Recovered/Resolved]
